FAERS Safety Report 10622258 (Version 1)
Quarter: 2014Q4

REPORT INFORMATION
  Report Type: Spontaneous
  Country: US (occurrence: None)
  Receive Date: 20141202
  Receipt Date: 20141202
  Transmission Date: 20150529
  Serious: Yes (Hospitalization)
  Sender: FDA-Public Use
  Company Number: None

PATIENT
  Age: 46 Year
  Sex: Female
  Weight: 132 kg

DRUGS (1)
  1. TAXOL [Suspect]
     Active Substance: PACLITAXEL
     Dates: end: 20091124

REACTIONS (4)
  - Dehydration [None]
  - Blood glucose increased [None]
  - Neutropenia [None]
  - Dysphagia [None]

NARRATIVE: CASE EVENT DATE: 20091103
